FAERS Safety Report 24133520 (Version 3)
Quarter: 2024Q3

REPORT INFORMATION
  Report Type: Spontaneous
  Country: US (occurrence: US)
  Receive Date: 20240724
  Receipt Date: 20240813
  Transmission Date: 20241016
  Serious: Yes (Death, Life-Threatening, Hospitalization, Other)
  Sender: SANDOZ
  Company Number: US-SANDOZ-SDZ2024US066855

PATIENT
  Sex: Male

DRUGS (1)
  1. TREPROSTINIL [Suspect]
     Active Substance: TREPROSTINIL
     Indication: Pulmonary arterial hypertension
     Dosage: 72 NG/KG/MIN (CONTINUOUS)
     Route: 058
     Dates: start: 202407

REACTIONS (5)
  - Death [Fatal]
  - Illness [Unknown]
  - Respiratory disorder [Unknown]
  - Product dose omission issue [Unknown]
  - Device dislocation [Unknown]
